FAERS Safety Report 9237681 (Version 2)
Quarter: 2013Q3

REPORT INFORMATION
  Report Type: Spontaneous
  Country: US (occurrence: US)
  Receive Date: 20130418
  Receipt Date: 20130920
  Transmission Date: 20140515
  Serious: No
  Sender: FDA-Public Use
  Company Number: US-BIOGENIDEC-2013BI032927

PATIENT
  Sex: Female

DRUGS (3)
  1. TYSABRI [Suspect]
     Indication: MULTIPLE SCLEROSIS
     Route: 042
     Dates: start: 20110721
  2. LINZESS [Concomitant]
     Indication: PRODUCT USED FOR UNKNOWN INDICATION
     Dates: start: 2013
  3. BENADRYL [Concomitant]
     Indication: PREMEDICATION

REACTIONS (27)
  - Dysuria [Not Recovered/Not Resolved]
  - Insomnia [Not Recovered/Not Resolved]
  - Frustration [Not Recovered/Not Resolved]
  - Abdominal pain upper [Not Recovered/Not Resolved]
  - Neuralgia [Unknown]
  - Paraesthesia [Unknown]
  - Throat tightness [Unknown]
  - Apathy [Not Recovered/Not Resolved]
  - Gastric disorder [Not Recovered/Not Resolved]
  - Lymphadenopathy [Not Recovered/Not Resolved]
  - Feeling abnormal [Not Recovered/Not Resolved]
  - Hypokinesia [Not Recovered/Not Resolved]
  - Sensation of foreign body [Unknown]
  - Tonsillar inflammation [Not Recovered/Not Resolved]
  - Dysphagia [Not Recovered/Not Resolved]
  - Anxiety [Unknown]
  - Diarrhoea [Unknown]
  - Gingival cyst [Unknown]
  - Pyrexia [Unknown]
  - Headache [Unknown]
  - Multiple sclerosis relapse [Unknown]
  - Chills [Recovered/Resolved]
  - Asthenia [Not Recovered/Not Resolved]
  - Fatigue [Not Recovered/Not Resolved]
  - Urinary tract infection [Not Recovered/Not Resolved]
  - Nausea [Not Recovered/Not Resolved]
  - Malaise [Unknown]
